FAERS Safety Report 15325344 (Version 11)
Quarter: 2019Q2

REPORT INFORMATION
  Report Type: Spontaneous
  Country: US (occurrence: US)
  Receive Date: 20180828
  Receipt Date: 20190516
  Transmission Date: 20190711
  Serious: No
  Sender: FDA-Public Use
  Company Number: US-BRISTOL-MYERS SQUIBB COMPANY-BMS-2018-080223

PATIENT
  Sex: Female
  Weight: 57.6 kg

DRUGS (3)
  1. ORENCIA [Suspect]
     Active Substance: ABATACEPT
     Indication: PRODUCT USED FOR UNKNOWN INDICATION
     Dosage: 125 MG, QWK
     Route: 058
     Dates: start: 201903
  2. ORENCIA [Suspect]
     Active Substance: ABATACEPT
     Indication: RHEUMATOID ARTHRITIS
     Dosage: 125 MG/ML, QWK
     Route: 058
     Dates: start: 201710
  3. ORENCIA [Suspect]
     Active Substance: ABATACEPT
     Indication: PRODUCT USED FOR UNKNOWN INDICATION
     Dosage: 125 MG, QWK
     Route: 058
     Dates: start: 201808

REACTIONS (10)
  - Headache [Not Recovered/Not Resolved]
  - Lip swelling [Unknown]
  - Product administration error [Unknown]
  - Swollen tongue [Unknown]
  - Adverse drug reaction [Unknown]
  - Ocular hyperaemia [Unknown]
  - Swelling face [Unknown]
  - Injection site mass [Unknown]
  - Injection site haemorrhage [Unknown]
  - Eye pruritus [Unknown]
